FAERS Safety Report 19922410 (Version 1)
Quarter: 2021Q4

REPORT INFORMATION
  Report Type: Spontaneous
  Country: JP (occurrence: JP)
  Receive Date: 20211005
  Receipt Date: 20211005
  Transmission Date: 20220303
  Serious: Yes (Hospitalization)
  Sender: FDA-Public Use
  Company Number: JP-DSJP-DSJ-2021-132109

PATIENT
  Age: 68 Year
  Sex: Female
  Weight: 58 kg

DRUGS (16)
  1. EDOXABAN TOSYLATE [Suspect]
     Active Substance: EDOXABAN TOSYLATE
     Indication: Deep vein thrombosis
     Dosage: 60MG/DAY
     Route: 065
  2. THEOPHYLLINE ANHYDROUS [Suspect]
     Active Substance: THEOPHYLLINE ANHYDROUS
     Indication: Asthma
     Dosage: 200MG/DAY
     Route: 065
     Dates: end: 20190609
  3. BUDESONIDE\FORMOTEROL [Suspect]
     Active Substance: BUDESONIDE\FORMOTEROL
     Indication: Asthma
     Dosage: 18/640 ?G, BID
  4. SALMETEROL XINAFOATE AND FLUTICASONE PROPIONATE [Concomitant]
     Indication: Asthma
     Dosage: 50/500UG, BID
  5. TIOTROPIUM BROMIDE [Concomitant]
     Active Substance: TIOTROPIUM BROMIDE
     Dosage: 5UG/DAY
  6. ESOMEPRAZOLE. [Concomitant]
     Active Substance: ESOMEPRAZOLE MAGNESIUM
     Dosage: 20MG/DAY
     Route: 065
  7. NIFEDIPINE [Concomitant]
     Active Substance: NIFEDIPINE
     Dosage: 20MG/DAY
     Route: 065
  8. CARBOCYSTEINE [Concomitant]
     Active Substance: CARBOCYSTEINE
     Dosage: 1500MG/DAY
     Route: 065
  9. ALFACALCIDOL [Concomitant]
     Active Substance: ALFACALCIDOL
     Dosage: 1UG/DAY
     Route: 065
  10. ALBUTEROL [Concomitant]
     Active Substance: ALBUTEROL
     Indication: Asthma
     Dosage: 2 MG, TID
     Dates: start: 20190527, end: 20190530
  11. ALBUTEROL [Concomitant]
     Active Substance: ALBUTEROL
     Indication: Pneumonia bacterial
  12. BETAMETHASONE [Concomitant]
     Active Substance: BETAMETHASONE
     Indication: Asthma
     Dosage: 4-8MG/DAY
     Route: 065
     Dates: start: 20190527, end: 20190530
  13. BETAMETHASONE [Concomitant]
     Active Substance: BETAMETHASONE
     Indication: Pneumonia bacterial
  14. CEFTRIAXONE [Concomitant]
     Active Substance: CEFTRIAXONE
     Indication: Asthma
     Dosage: 2G/DAY
     Route: 065
     Dates: start: 20190527, end: 20190603
  15. CEFTRIAXONE [Concomitant]
     Active Substance: CEFTRIAXONE
     Indication: Pneumonia bacterial
  16. POTASSIUM [Concomitant]
     Active Substance: POTASSIUM
     Indication: Blood potassium decreased
     Dosage: 20 MEQ/DAY
     Route: 065

REACTIONS (4)
  - Pneumonia bacterial [Recovering/Resolving]
  - Heart rate increased [Recovering/Resolving]
  - Blood potassium decreased [Recovering/Resolving]
  - Atrial fibrillation [Unknown]

NARRATIVE: CASE EVENT DATE: 20190527
